FAERS Safety Report 7621733-X (Version None)
Quarter: 2011Q3

REPORT INFORMATION
  Report Type: 
  Country: None (occurrence: None)
  Receive Date: 20110719
  Receipt Date: 20110707
  Transmission Date: 20111222
  Serious: Yes (Other)
  Sender: FDA-Public Use
  Company Number: DE-GENENTECH-321559

PATIENT
  Sex: Female

DRUGS (8)
  1. DIAMOX SRC [Suspect]
     Indication: INTRAOCULAR PRESSURE DECREASED
     Dosage: UNK
     Route: 042
     Dates: start: 20110101
  2. DIAMOX SRC [Suspect]
     Dosage: UNK
     Route: 042
     Dates: start: 20110501
  3. DIAMOX SRC [Suspect]
     Dosage: UNK
     Route: 042
     Dates: start: 20110401
  4. LUCENTIS [Suspect]
     Dosage: UNK
     Route: 031
     Dates: start: 20110101
  5. LUCENTIS [Suspect]
     Dosage: UNK
     Route: 031
     Dates: start: 20110501
  6. LUCENTIS [Suspect]
     Dosage: UNK
     Route: 031
     Dates: start: 20110401
  7. LUCENTIS [Suspect]
     Dosage: UNK
     Route: 031
     Dates: start: 20110627
  8. LUCENTIS [Suspect]
     Indication: AGE-RELATED MACULAR DEGENERATION
     Dosage: UNK
     Route: 042
     Dates: start: 20100101

REACTIONS (3)
  - HYPERSENSITIVITY [None]
  - INAPPROPRIATE SCHEDULE OF DRUG ADMINISTRATION [None]
  - YERSINIA INFECTION [None]
